FAERS Safety Report 6002232-8 (Version None)
Quarter: 2008Q4

REPORT INFORMATION
  Report Type: 
  Country: None (occurrence: None)
  Receive Date: 20081212
  Receipt Date: 20081201
  Transmission Date: 20090506
  Serious: Yes (Life-Threatening, Hospitalization)
  Sender: FDA-Public Use
  Company Number: 2008AL012084

PATIENT
  Age: 73 Year
  Sex: Female
  Weight: 54.4316 kg

DRUGS (1)
  1. DIGOXIN [Suspect]
     Indication: MYOCARDIAL INFARCTION
     Dosage: 0.125MG, DAILY, PO
     Route: 048
     Dates: start: 20070701, end: 20080401

REACTIONS (3)
  - COLON OPERATION [None]
  - MYOCARDIAL INFARCTION [None]
  - RENAL DISORDER [None]
